FAERS Safety Report 17829775 (Version 2)
Quarter: 2020Q2

REPORT INFORMATION
  Report Type: Report from Study
  Country: None (occurrence: US)
  Receive Date: 20200527
  Receipt Date: 20200529
  Transmission Date: 20200714
  Serious: Yes (Hospitalization)
  Sender: FDA-Public Use
  Company Number: US-ABBVIE-20K-163-3352801-00

PATIENT
  Age: 87 Year
  Sex: Male
  Weight: 75 kg

DRUGS (5)
  1. IMBRUVICA [Suspect]
     Active Substance: IBRUTINIB
     Indication: CHRONIC LYMPHOCYTIC LEUKAEMIA
     Route: 048
     Dates: start: 20190227, end: 20200202
  2. VANCOMYCIN ABBOTT [Concomitant]
     Indication: CELLULITIS
     Route: 042
     Dates: start: 20200207, end: 20200209
  3. CEFAZOLIN [Concomitant]
     Active Substance: CEFAZOLIN
     Indication: CELLULITIS
     Route: 042
  4. IMBRUVICA [Suspect]
     Active Substance: IBRUTINIB
     Route: 048
     Dates: start: 20200228
  5. IMBRUVICA [Suspect]
     Active Substance: IBRUTINIB
     Route: 048
     Dates: start: 20190227

REACTIONS (1)
  - Tenosynovitis [Recovered/Resolved with Sequelae]

NARRATIVE: CASE EVENT DATE: 20200205
